FAERS Safety Report 6442256-X (Version None)
Quarter: 2009Q4

REPORT INFORMATION
  Report Type: 
  Country: None (occurrence: None)
  Receive Date: 20091112
  Receipt Date: 20091028
  Transmission Date: 20100525
  Serious: Yes (Hospitalization, Disabling)
  Sender: FDA-Public Use
  Company Number: GB-DEXPHARM-2006-1342

PATIENT
  Sex: Male

DRUGS (5)
  1. OMEPRAZOLE  I V  ACTIVE SUBSTANCES: OMEPRAZOLE [Suspect]
     Dosage: INTRAVENOUS(NOT OTHERWISE SPECIFIED)
     Route: 042
     Dates: start: 20050505, end: 20050527
  2. LOSEC [Suspect]
     Indication: GASTROOESOPHAGEAL REFLUX DISEASE
     Dosage: ORAL; ACTIVE SUBSUTANCES:
     Route: 048
     Dates: start: 20050101, end: 20050501
  3. LANSOPRAZOLE [Suspect]
     Dosage: ACTIVE SUBSUTANCES: LANSOPRAZOLE
  4. PANTOPRAZOL [Suspect]
     Dosage: ACTIVE SUBSUTANCES: PANTOPRAZOLE
  5. RABEPRAZOLE [Suspect]
     Dosage: ACTIVE SUBSUTANCES: RABEPRAZOLE

REACTIONS (2)
  - HYPOMAGNESAEMIA [None]
  - TETANY [None]
